FAERS Safety Report 7522380-0 (Version None)
Quarter: 2011Q2

REPORT INFORMATION
  Report Type: 
  Country: None (occurrence: None)
  Receive Date: 20110603
  Receipt Date: 20110520
  Transmission Date: 20111010
  Serious: Yes (Other)
  Sender: FDA-Public Use
  Company Number: CA-ELI_LILLY_AND_COMPANY-CA201105006043

PATIENT
  Sex: Male

DRUGS (19)
  1. ZYPREXA ZYDIS [Suspect]
     Indication: BIPOLAR DISORDER
     Dosage: 20 MG, QD
  2. SERTRALINE HYDROCHLORIDE [Concomitant]
  3. VIAGRA [Concomitant]
  4. CLOZAPINE [Concomitant]
  5. PIPORTIL [Concomitant]
  6. GEMFIBROZIL [Concomitant]
     Dosage: UNK UNK, BID
  7. LITHIUM CARBONATE [Concomitant]
  8. ZYPREXA [Suspect]
     Dosage: 20 MG, QD
  9. LORAZEPAM [Concomitant]
  10. CYTOMEL [Concomitant]
  11. DEXAMETHASONE [Concomitant]
  12. ZYPREXA [Suspect]
     Indication: BIPOLAR DISORDER
     Dosage: 10 MG, QD
  13. ZYPREXA [Suspect]
     Dosage: 7.5 MG, QD
  14. ZOPICLONE [Concomitant]
  15. TEMAZEPAM [Concomitant]
  16. LAMOTRIGINE [Concomitant]
  17. RISPERIDONE [Concomitant]
  18. BUPROPION HCL [Concomitant]
  19. LEVITRA [Concomitant]

REACTIONS (6)
  - HYPOTENSION [None]
  - DIABETES MELLITUS [None]
  - DYSLIPIDAEMIA [None]
  - MYOCARDIAL INFARCTION [None]
  - BRADYCARDIA [None]
  - EXTRASYSTOLES [None]
